FAERS Safety Report 17295357 (Version 2)
Quarter: 2020Q1

REPORT INFORMATION
  Report Type: Report from Study
  Country: US (occurrence: US)
  Receive Date: 20200121
  Receipt Date: 20200131
  Transmission Date: 20200409
  Serious: Yes (Other)
  Sender: FDA-Public Use
  Company Number: US-ROCHE-2524318

PATIENT
  Sex: Female

DRUGS (2)
  1. VALCYTE [Suspect]
     Active Substance: VALGANCICLOVIR HYDROCHLORIDE
     Indication: RENAL TRANSPLANT
     Dosage: 450 MG TABLETS
     Route: 048
  2. CELLCEPT [Suspect]
     Active Substance: MYCOPHENOLATE MOFETIL\MYCOPHENOLATE MOFETIL HYDROCHLORIDE
     Indication: RENAL TRANSPLANT
     Dosage: 250 MG CAPSULES
     Route: 048

REACTIONS (12)
  - Sleep disorder [Unknown]
  - Pain [Unknown]
  - Vulval cancer [Not Recovered/Not Resolved]
  - Herpes virus infection [Unknown]
  - Nausea [Unknown]
  - Urinary tract infection [Unknown]
  - Depression [Unknown]
  - Constipation [Unknown]
  - Vomiting [Unknown]
  - Dysuria [Unknown]
  - Abdominal pain [Unknown]
  - Anxiety [Unknown]
